FAERS Safety Report 11349411 (Version 1)
Quarter: 2015Q3

REPORT INFORMATION
  Report Type: Spontaneous
  Country: PH (occurrence: PH)
  Receive Date: 20150807
  Receipt Date: 20150807
  Transmission Date: 20151125
  Serious: Yes (Hospitalization)
  Sender: FDA-Public Use
  Company Number: PH-009507513-1508PHL000759

PATIENT
  Age: 75 Year
  Sex: Male

DRUGS (2)
  1. SOLOSAMET [Concomitant]
     Indication: DIABETES MELLITUS
  2. JANUMET [Suspect]
     Active Substance: METFORMIN HYDROCHLORIDE\SITAGLIPTIN PHOSPHATE
     Indication: DIABETES MELLITUS
     Dosage: 1 TABLET, DAILY
     Route: 048
     Dates: end: 2015

REACTIONS (2)
  - Localised infection [Recovering/Resolving]
  - Blood glucose fluctuation [Recovering/Resolving]

NARRATIVE: CASE EVENT DATE: 2015
